FAERS Safety Report 7579803-0 (Version None)
Quarter: 2011Q2

REPORT INFORMATION
  Report Type: 
  Country: None (occurrence: None)
  Receive Date: 20110629
  Receipt Date: 20110620
  Transmission Date: 20111010
  Serious: Yes (Other)
  Sender: FDA-Public Use
  Company Number: US-NOVOPROD-330194

PATIENT
  Age: 42 Year
  Sex: Female
  Weight: 96.599 kg

DRUGS (5)
  1. LOVASTATIN [Concomitant]
     Indication: HYPERLIPIDAEMIA
     Dosage: UNK
  2. QUINAPRIL HCL [Concomitant]
     Indication: HYPERTENSION
     Dosage: UNK
  3. ASPIRIN [Concomitant]
     Indication: PRODUCT USED FOR UNKNOWN INDICATION
     Dosage: 81 MG, QD
  4. VICTOZA [Suspect]
     Indication: TYPE 2 DIABETES MELLITUS
     Dosage: 1.8 MG, QD
     Dates: end: 20110609
  5. METFORMIN HCL [Concomitant]
     Indication: TYPE 2 DIABETES MELLITUS
     Dosage: 500 MG, BID

REACTIONS (1)
  - PANCREATITIS [None]
